FAERS Safety Report 10289847 (Version 2)
Quarter: 2018Q1

REPORT INFORMATION
  Report Type: Spontaneous
  Country: IT (occurrence: IT)
  Receive Date: 20140710
  Receipt Date: 20180222
  Transmission Date: 20180508
  Serious: Yes (Other)
  Sender: FDA-Public Use
  Company Number: IT-JNJFOC-20140700959

PATIENT

DRUGS (2)
  1. TOPAMAX [Suspect]
     Active Substance: TOPIRAMATE
     Indication: PROPHYLAXIS
     Route: 048
  2. TOPAMAX [Suspect]
     Active Substance: TOPIRAMATE
     Indication: HYPOXIC-ISCHAEMIC ENCEPHALOPATHY
     Route: 048

REACTIONS (5)
  - Product use issue [Unknown]
  - Epilepsy [Unknown]
  - Wrong technique in product usage process [Unknown]
  - Off label use [Unknown]
  - Product use in unapproved indication [Unknown]
